FAERS Safety Report 5994411-0 (Version None)
Quarter: 2008Q4

REPORT INFORMATION
  Report Type: 
  Country: None (occurrence: None)
  Receive Date: 20081212
  Receipt Date: 20080922
  Transmission Date: 20090506
  Serious: No
  Sender: FDA-Public Use
  Company Number: US-ABBOTT-08P-163-0475214-00

PATIENT
  Sex: Female
  Weight: 95.34 kg

DRUGS (4)
  1. HUMIRA [Suspect]
     Indication: BEHCET'S SYNDROME
     Route: 058
     Dates: start: 20080201, end: 20080601
  2. PREDNISONE TAB [Concomitant]
     Indication: BEHCET'S SYNDROME
     Route: 048
     Dates: start: 20080901
  3. METHOTREXATE [Concomitant]
     Indication: BEHCET'S SYNDROME
     Route: 048
     Dates: start: 20070101
  4. KETOCONAZOLE [Concomitant]
     Indication: DRUG USE FOR UNKNOWN INDICATION
     Route: 048
     Dates: start: 20070101

REACTIONS (6)
  - ABDOMINAL PAIN UPPER [None]
  - BEHCET'S SYNDROME [None]
  - ERYTHEMA [None]
  - IMPAIRED HEALING [None]
  - MOUTH ULCERATION [None]
  - VULVAL ULCERATION [None]
